FAERS Safety Report 23476882 (Version 1)
Quarter: 2024Q1

REPORT INFORMATION
  Report Type: Report from Study
  Country: US (occurrence: US)
  Receive Date: 20240204
  Receipt Date: 20240204
  Transmission Date: 20240410
  Serious: No
  Sender: FDA-Public Use
  Company Number: US-EXELIXIS-CABO-23064813

PATIENT
  Sex: Female

DRUGS (16)
  1. CABOMETYX [Suspect]
     Active Substance: CABOZANTINIB S-MALATE
     Indication: Renal cancer
     Dosage: 40 MG
  2. CABOMETYX [Suspect]
     Active Substance: CABOZANTINIB S-MALATE
     Dosage: 60 MG
  3. CABOMETYX [Suspect]
     Active Substance: CABOZANTINIB S-MALATE
     Dosage: 40 MG
     Dates: end: 20230523
  4. CABOMETYX [Suspect]
     Active Substance: CABOZANTINIB S-MALATE
     Dosage: 20 MG
  5. ASPIRIN [Concomitant]
     Active Substance: ASPIRIN
  6. BUTALBITAL AND ACETAMINOPHEN [Concomitant]
     Active Substance: ACETAMINOPHEN\BUTALBITAL
  7. CALCIUM [Concomitant]
     Active Substance: CALCIUM
  8. LEVOTHYROXINE [Concomitant]
     Active Substance: LEVOTHYROXINE\LEVOTHYROXINE SODIUM
  9. LORAZEPAM [Concomitant]
     Active Substance: LORAZEPAM
  10. METOPROLOL [Concomitant]
     Active Substance: METOPROLOL
  11. OMEPRAZOLE [Concomitant]
     Active Substance: OMEPRAZOLE
  12. ONDANSETRON [Concomitant]
     Active Substance: ONDANSETRON
  13. POTASSIUM CHLORIDE [Concomitant]
     Active Substance: POTASSIUM CHLORIDE
  14. SIMVASTATIN [Concomitant]
     Active Substance: SIMVASTATIN
  15. VITAMIN B12 [Concomitant]
     Active Substance: CYANOCOBALAMIN
  16. VITAMIN C [Concomitant]
     Active Substance: ASCORBIC ACID

REACTIONS (9)
  - Palpitations [Unknown]
  - Parosmia [Unknown]
  - Abdominal discomfort [Not Recovered/Not Resolved]
  - Blood potassium decreased [Unknown]
  - Diarrhoea [Unknown]
  - Blood pressure increased [Unknown]
  - Nausea [Unknown]
  - Fatigue [Unknown]
  - Hepatic lesion [Unknown]
